FAERS Safety Report 17800513 (Version 1)
Quarter: 2020Q2

REPORT INFORMATION
  Report Type: Spontaneous
  Country: FR (occurrence: FR)
  Receive Date: 20200519
  Receipt Date: 20200519
  Transmission Date: 20200714
  Serious: Yes (Hospitalization)
  Sender: FDA-Public Use
  Company Number: FR-AUROBINDO-AUR-APL-2020-024528

PATIENT
  Age: 15 Year
  Sex: Female
  Weight: 50 kg

DRUGS (1)
  1. ALPRAZOLAM. [Suspect]
     Active Substance: ALPRAZOLAM
     Indication: PRODUCT USED FOR UNKNOWN INDICATION
     Dosage: 5.5 GRAM 1TOTAL
     Route: 048
     Dates: start: 20200302, end: 20200303

REACTIONS (2)
  - Intentional overdose [Recovered/Resolved]
  - Benzodiazepine drug level abnormal [Recovered/Resolved]

NARRATIVE: CASE EVENT DATE: 20200303
